FAERS Safety Report 14602883 (Version 2)
Quarter: 2018Q1

REPORT INFORMATION
  Report Type: Spontaneous
  Country: US (occurrence: US)
  Receive Date: 20180306
  Receipt Date: 20180330
  Transmission Date: 20180509
  Serious: No
  Sender: FDA-Public Use
  Company Number: US-ASTRAZENECA-2018SE21183

PATIENT
  Sex: Female
  Weight: 65.8 kg

DRUGS (1)
  1. BYDUREON BCISE [Suspect]
     Active Substance: EXENATIDE
     Indication: DIABETES MELLITUS
     Route: 058
     Dates: start: 20180211

REACTIONS (6)
  - Blood glucose increased [Unknown]
  - Musculoskeletal pain [Unknown]
  - Device malfunction [Unknown]
  - Product use issue [Unknown]
  - Underdose [Unknown]
  - Needle issue [Unknown]
